FAERS Safety Report 7920755-9 (Version None)
Quarter: 2011Q4

REPORT INFORMATION
  Report Type: 
  Country: None (occurrence: None)
  Receive Date: 20111117
  Receipt Date: 20111108
  Transmission Date: 20120403
  Serious: Yes (Death, Life-Threatening, Other)
  Sender: FDA-Public Use
  Company Number: JP-PFIZER INC-2011272338

PATIENT
  Age: 87 Year
  Sex: Male

DRUGS (5)
  1. ZOSYN [Concomitant]
     Indication: PNEUMONIA
     Dosage: 2.25 G, 1X/DAY
     Route: 041
     Dates: start: 20111104, end: 20111104
  2. ZYVOX [Suspect]
     Dosage: 1200 MG, DAILY
     Route: 041
     Dates: start: 20111103, end: 20111106
  3. CIPROFLOXACIN HCL [Concomitant]
     Indication: PNEUMONIA
     Dosage: 300 MG, DAILY
     Route: 042
     Dates: start: 20111102, end: 20111103
  4. ZYVOX [Suspect]
     Indication: PNEUMONIA
     Dosage: 600 MG, DAILY
     Route: 041
     Dates: start: 20111102, end: 20111102
  5. ZOSYN [Concomitant]
     Dosage: 6.75 G, 1X/DAY
     Route: 041
     Dates: start: 20111105, end: 20111106

REACTIONS (1)
  - ACUTE HEPATIC FAILURE [None]
